FAERS Safety Report 15672694 (Version 8)
Quarter: 2019Q4

REPORT INFORMATION
  Report Type: Report from Study
  Country: US (occurrence: US)
  Receive Date: 20181129
  Receipt Date: 20191028
  Transmission Date: 20200122
  Serious: Yes (Other)
  Sender: FDA-Public Use
  Company Number: US-JNJFOC-20181138278

PATIENT
  Age: 72 Year
  Sex: Male

DRUGS (24)
  1. IMBRUVICA [Suspect]
     Active Substance: IBRUTINIB
     Dosage: 280 MG, QD
     Route: 048
     Dates: start: 20170720, end: 20180423
  2. TAMSULOSIN [Concomitant]
     Active Substance: TAMSULOSIN
  3. IMBRUVICA [Suspect]
     Active Substance: IBRUTINIB
     Indication: CHRONIC LYMPHOCYTIC LEUKAEMIA
     Dosage: 280 MG, QD
     Route: 048
     Dates: start: 20180425, end: 20180521
  4. MONTELUKAST [Concomitant]
     Active Substance: MONTELUKAST SODIUM
  5. IMBRUVICA [Suspect]
     Active Substance: IBRUTINIB
     Indication: CHRONIC LYMPHOCYTIC LEUKAEMIA
     Dosage: 280 MG, QD
     Route: 048
     Dates: start: 20161122
  6. SULFASALAZINE. [Concomitant]
     Active Substance: SULFASALAZINE
  7. ATORVASTATIN [Concomitant]
     Active Substance: ATORVASTATIN
  8. FOLIC ACID. [Concomitant]
     Active Substance: FOLIC ACID
  9. IMBRUVICA [Suspect]
     Active Substance: IBRUTINIB
     Dosage: 280 MG, QD
     Route: 048
     Dates: start: 20180522
  10. CETIRIZINE [Concomitant]
     Active Substance: CETIRIZINE HYDROCHLORIDE
  11. MULTI [Concomitant]
  12. SYNTHROID [Concomitant]
     Active Substance: LEVOTHYROXINE SODIUM
  13. PRESERVISION [Concomitant]
     Active Substance: MINERALS\VITAMINS
  14. IMBRUVICA [Suspect]
     Active Substance: IBRUTINIB
     Dosage: 280 MG, QD
     Route: 048
     Dates: start: 20180401
  15. SILDENAFIL. [Concomitant]
     Active Substance: SILDENAFIL
  16. LISINOPRIL. [Concomitant]
     Active Substance: LISINOPRIL
  17. METOPROLOL. [Concomitant]
     Active Substance: METOPROLOL
  18. VITAMIN D [Concomitant]
     Active Substance: VITAMIN D NOS
  19. CIALIS [Concomitant]
     Active Substance: TADALAFIL
  20. VITAMIN B12 [Concomitant]
     Active Substance: CYANOCOBALAMIN
  21. MEMANTINE. [Concomitant]
     Active Substance: MEMANTINE
  22. LOSARTAN. [Concomitant]
     Active Substance: LOSARTAN
  23. MULTIVITAMIN                       /00097801/ [Concomitant]
     Active Substance: VITAMINS
  24. PROBIOTIC                          /06395501/ [Concomitant]
     Active Substance: BIFIDOBACTERIUM ANIMALIS LACTIS

REACTIONS (5)
  - Atrial flutter [Unknown]
  - Atrial fibrillation [Not Recovered/Not Resolved]
  - Fatigue [Not Recovered/Not Resolved]
  - Sleep apnoea syndrome [Recovering/Resolving]
  - Computerised tomogram coronary artery abnormal [Unknown]

NARRATIVE: CASE EVENT DATE: 20181110
